FAERS Safety Report 22394515 (Version 1)
Quarter: 2023Q2

REPORT INFORMATION
  Report Type: Report from Study
  Country: CN (occurrence: CN)
  Receive Date: 20230601
  Receipt Date: 20230601
  Transmission Date: 20230722
  Serious: Yes (Other)
  Sender: FDA-Public Use
  Company Number: CN-BAYER-2023A073129

PATIENT

DRUGS (1)
  1. AVELOX [Suspect]
     Active Substance: MOXIFLOXACIN HYDROCHLORIDE
     Indication: Pneumonia mycoplasmal
     Route: 041

REACTIONS (3)
  - Aortic valve incompetence [None]
  - Tricuspid valve incompetence [None]
  - Off label use [None]
